FAERS Safety Report 10460065 (Version 1)
Quarter: 2014Q3

REPORT INFORMATION
  Report Type: Spontaneous
  Country: US (occurrence: US)
  Receive Date: 20140917
  Receipt Date: 20140917
  Transmission Date: 20150326
  Serious: Yes (Death, Hospitalization, Other)
  Sender: FDA-Public Use
  Company Number: US-B.I. PHARMACEUTICALS,INC./RIDGEFIELD-2014-BI-43440BP

PATIENT
  Age: 75 Year
  Sex: Male

DRUGS (1)
  1. PRADAXA [Suspect]
     Active Substance: DABIGATRAN ETEXILATE MESYLATE
     Indication: ATRIAL FIBRILLATION
     Route: 065
     Dates: start: 20111011, end: 2012

REACTIONS (14)
  - Hydrocephalus [Unknown]
  - Brain stem stroke [Unknown]
  - Anaemia [Unknown]
  - Electrolyte imbalance [Unknown]
  - Cardiac arrest [Recovered/Resolved]
  - Leukocytosis [Unknown]
  - Respiratory failure [Unknown]
  - Respiratory distress [Unknown]
  - Cerebral vasoconstriction [Unknown]
  - VIth nerve paralysis [Unknown]
  - Fluid overload [Unknown]
  - Subarachnoid haemorrhage [Fatal]
  - Angiopathy [Unknown]
  - Cerebrovascular accident [Unknown]

NARRATIVE: CASE EVENT DATE: 201203
